FAERS Safety Report 11714889 (Version 1)
Quarter: 2015Q4

REPORT INFORMATION
  Report Type: Spontaneous
  Country: US (occurrence: US)
  Receive Date: 20151109
  Receipt Date: 20151109
  Transmission Date: 20160304
  Serious: No
  Sender: FDA-Public Use
  Company Number: US-GLAXOSMITHKLINE-US2015158453

PATIENT
  Age: 50 Year
  Sex: Male

DRUGS (1)
  1. ABREVA [Suspect]
     Active Substance: DOCOSANOL
     Indication: ORAL HERPES
     Dosage: UNK
     Dates: start: 20151031, end: 20151104

REACTIONS (6)
  - Oral herpes [Not Recovered/Not Resolved]
  - Lip blister [Not Recovered/Not Resolved]
  - Lip haemorrhage [Not Recovered/Not Resolved]
  - Incorrect drug administration duration [Unknown]
  - Condition aggravated [Not Recovered/Not Resolved]
  - Lip injury [Not Recovered/Not Resolved]
